FAERS Safety Report 5523447-9 (Version None)
Quarter: 2007Q4

REPORT INFORMATION
  Report Type: 
  Country: None (occurrence: None)
  Receive Date: 20071121
  Receipt Date: 20071115
  Transmission Date: 20080405
  Serious: Yes (Hospitalization)
  Sender: FDA-Public Use
  Company Number: SG-AVENTIS-200720157GDDC

PATIENT
  Age: 42 Year
  Sex: Female

DRUGS (8)
  1. LANTUS [Suspect]
     Route: 058
     Dates: start: 20070118
  2. METFORMIN HCL [Concomitant]
     Route: 048
  3. DIAMICRON [Concomitant]
     Route: 048
  4. DIOVAN HCT [Concomitant]
     Indication: HYPERTENSION
     Dosage: DOSE: 160/25
     Route: 048
  5. NIFEDIPINE [Concomitant]
     Indication: HYPERTENSION
     Route: 048
  6. ASPIRIN [Concomitant]
     Route: 048
  7. UNKNOWN DRUG [Concomitant]
     Dosage: DOSE QUANTITY: 1
     Route: 048
  8. FOLIC ACID [Concomitant]
     Dosage: DOSE QUANTITY: 1
     Route: 048

REACTIONS (1)
  - NAUSEA [None]
